FAERS Safety Report 7385431-2 (Version None)
Quarter: 2011Q1

REPORT INFORMATION
  Report Type: 
  Country: None (occurrence: None)
  Receive Date: 20110330
  Receipt Date: 20101123
  Transmission Date: 20110831
  Serious: Yes (Other)
  Sender: FDA-Public Use
  Company Number: US-AMGEN-USASP2010004521

PATIENT
  Age: 8 Year
  Sex: Male

DRUGS (3)
  1. WINRHO [Concomitant]
     Indication: IDIOPATHIC THROMBOCYTOPENIC PURPURA
     Dosage: UNK
     Dates: start: 20100527
  2. NPLATE [Suspect]
     Indication: IDIOPATHIC THROMBOCYTOPENIC PURPURA
     Dosage: 10.6 A?G/KG, UNK
     Dates: start: 20091221
  3. NPLATE [Suspect]
     Dates: start: 20091221

REACTIONS (1)
  - DRUG INEFFECTIVE [None]
